FAERS Safety Report 14031094 (Version 4)
Quarter: 2017Q4

REPORT INFORMATION
  Report Type: Spontaneous
  Country: BE (occurrence: BE)
  Receive Date: 20171002
  Receipt Date: 20171031
  Transmission Date: 20180321
  Serious: Yes (Other)
  Sender: FDA-Public Use
  Company Number: BE-SA-2017SA176299

PATIENT
  Age: 19 Year
  Sex: Female

DRUGS (2)
  1. LEMTRADA [Suspect]
     Active Substance: ALEMTUZUMAB
     Route: 041
     Dates: start: 20161110
  2. LEMTRADA [Suspect]
     Active Substance: ALEMTUZUMAB
     Route: 041
     Dates: start: 20171016, end: 20171018

REACTIONS (11)
  - Asthenia [Not Recovered/Not Resolved]
  - Sensory disturbance [Not Recovered/Not Resolved]
  - Disease recurrence [Unknown]
  - Motor dysfunction [Unknown]
  - Blood glucose decreased [Unknown]
  - Lymphocyte count decreased [Unknown]
  - Neuromyelitis optica spectrum disorder [Unknown]
  - Diplopia [Unknown]
  - Glucose urine present [Unknown]
  - Nuclear magnetic resonance imaging abnormal [Unknown]
  - Nervous system disorder [Unknown]

NARRATIVE: CASE EVENT DATE: 2017
